FAERS Safety Report 9347936 (Version 2)
Quarter: 2013Q3

REPORT INFORMATION
  Report Type: Spontaneous
  Country: CA (occurrence: CA)
  Receive Date: 20130614
  Receipt Date: 20130722
  Transmission Date: 20140515
  Serious: No
  Sender: FDA-Public Use
  Company Number: CA-AMGEN-CANSP2013041768

PATIENT
  Age: 65 Year
  Sex: Male

DRUGS (1)
  1. XGEVA [Suspect]
     Indication: ENDOCRINE DISORDER
     Dosage: 120 MG, UNK
     Dates: start: 20130607

REACTIONS (2)
  - Constipation [Not Recovered/Not Resolved]
  - Urinary incontinence [Recovering/Resolving]
